FAERS Safety Report 8134224-7 (Version None)
Quarter: 2012Q1

REPORT INFORMATION
  Report Type: 
  Country: None (occurrence: None)
  Receive Date: 20120131
  Receipt Date: 20120116
  Transmission Date: 20120608
  Serious: Yes (Other)
  Sender: FDA-Public Use
  Company Number: 12-004

PATIENT
  Age: 52 Year
  Sex: Female

DRUGS (1)
  1. ALLERGENIC EXTRACTS [Suspect]
     Indication: IMMUNOSUPPRESSANT DRUG THERAPY
     Dosage: MULTIPLE, SEE ATTACHED

REACTIONS (1)
  - ANAPHYLACTIC REACTION [None]
